FAERS Safety Report 4791886-X (Version None)
Quarter: 2005Q4

REPORT INFORMATION
  Report Type: 
  Country: None (occurrence: None)
  Receive Date: 20051005
  Receipt Date: 20050919
  Transmission Date: 20060501
  Serious: Yes (Death, Hospitalization)
  Sender: FDA-Public Use
  Company Number: 2005RR-00784

PATIENT
  Age: 77 Year
  Sex: Female

DRUGS (2)
  1. CIPROFLOXACIN [Suspect]
     Indication: OTITIS MEDIA
  2. CIPROFLOXACIN [Suspect]
     Indication: OTITIS MEDIA

REACTIONS (8)
  - ANAEMIA [None]
  - CEREBRAL HAEMORRHAGE [None]
  - DEEP VEIN THROMBOSIS [None]
  - FACTOR XIII INHIBITION [None]
  - GASTRIC ULCER HAEMORRHAGE [None]
  - HAEMATOMA [None]
  - SOFT TISSUE HAEMORRHAGE [None]
  - THROMBOCYTOPENIA [None]
